FAERS Safety Report 7464672-X (Version None)
Quarter: 2011Q2

REPORT INFORMATION
  Report Type: 
  Country: None (occurrence: None)
  Receive Date: 20110509
  Receipt Date: 20110421
  Transmission Date: 20111010
  Serious: No
  Sender: FDA-Public Use
  Company Number: US-B.I. PHARMACEUTICALS,INC./RIDGEFIELD-2011-BP-06732BP

PATIENT
  Sex: Female

DRUGS (8)
  1. COREG CR [Concomitant]
     Dosage: 80 MG
     Route: 048
  2. PRADAXA [Suspect]
     Indication: ATRIAL FIBRILLATION
     Dosage: 300 MG
     Route: 048
     Dates: start: 20110206, end: 20110314
  3. HYDROCODONE BITARTRATE [Concomitant]
     Dosage: 15 MG
     Route: 048
  4. LEVOTHYROXINE SODIUM [Concomitant]
     Dosage: 125 MG
     Route: 048
  5. DIGOXIN [Concomitant]
     Dosage: 125 MCG
     Route: 048
  6. POTASSIUM [Concomitant]
     Dosage: 10 MG
     Route: 048
  7. SPIRIVA [Concomitant]
     Dosage: 18 MCG
     Route: 048
  8. LASIX [Concomitant]
     Dosage: 20 MCG
     Route: 048

REACTIONS (3)
  - HAEMATOCHEZIA [None]
  - ABDOMINAL PAIN [None]
  - HEADACHE [None]
